FAERS Safety Report 12469909 (Version 1)
Quarter: 2016Q2

REPORT INFORMATION
  Report Type: Spontaneous
  Country: US (occurrence: US)
  Receive Date: 20160615
  Receipt Date: 20160615
  Transmission Date: 20160815
  Serious: No
  Sender: FDA-Public Use
  Company Number: US-BAYER-2016-113088

PATIENT
  Age: 68 Year
  Sex: Female
  Weight: 56.69 kg

DRUGS (4)
  1. MIRALAX [Suspect]
     Active Substance: POLYETHYLENE GLYCOL 3350
     Indication: CONSTIPATION
     Dosage: 1 DF, UNK (ONE DOSE LAST NIGHT AND MIGHT TAKE HALF A DOSE THAT DAY)
     Route: 048
     Dates: start: 20160607
  2. TYLENOL COLD MULTI-SYMPTOM SEVERE [Suspect]
     Active Substance: ACETAMINOPHEN\DEXTROMETHORPHAN HYDROBROMIDE\GUAIFENESIN\PHENYLEPHRINE HYDROCHLORIDE
     Dosage: UNK, WAS ALTERNATING BETWEEN TAKING ALEVE, ADVIL AND TYLENOL.
     Dates: start: 201605, end: 201605
  3. ADVIL [Suspect]
     Active Substance: IBUPROFEN
     Dosage: UNK, WAS ALTERNATING BETWEEN TAKING ALEVE, ADVIL AND TYLENOL.
     Dates: start: 201605, end: 201605
  4. ALEVE [Suspect]
     Active Substance: NAPROXEN SODIUM
     Indication: ANALGESIC THERAPY
     Dosage: UNK, ALTERNATING BETWEEN TAKING ALEVE, ADVIL AND TYLENOL
     Dates: start: 201605, end: 201605

REACTIONS (2)
  - Constipation [Not Recovered/Not Resolved]
  - Drug prescribing error [None]

NARRATIVE: CASE EVENT DATE: 201606
